FAERS Safety Report 9234509 (Version 2)
Quarter: 2013Q2

REPORT INFORMATION
  Report Type: Spontaneous
  Country: US (occurrence: US)
  Receive Date: 20130416
  Receipt Date: 20130416
  Transmission Date: 20140414
  Serious: No
  Sender: FDA-Public Use
  Company Number: US-BANPHARM-20120281

PATIENT
  Age: 66 Year
  Sex: Female
  Weight: 50 kg

DRUGS (7)
  1. ALEVE LIQUID GELS 220 MG [Suspect]
     Route: 048
  2. GENUINE BAYER? ASA 100S TABLET EASY GRIP [Suspect]
     Indication: FOOT FRACTURE
     Dosage: 1 DF, QD,
     Route: 048
     Dates: start: 20121019
  3. CITRACAL PETITES [Suspect]
  4. POTASSIUM PLUS MAGNESIUM [Concomitant]
  5. MULTI VITAMIN [Concomitant]
  6. IRON [Concomitant]
  7. GLUCOSAMINE AND CHONDROITIN [Concomitant]

REACTIONS (1)
  - Anxiety [Not Recovered/Not Resolved]
